FAERS Safety Report 13742262 (Version 1)
Quarter: 2017Q3

REPORT INFORMATION
  Report Type: Spontaneous
  Country: US (occurrence: US)
  Receive Date: 20170711
  Receipt Date: 20170711
  Transmission Date: 20171127
  Serious: No
  Sender: FDA-Public Use
  Company Number: US-TEVA-786119ACC

PATIENT
  Age: 16 Year
  Sex: Female
  Weight: 59.02 kg

DRUGS (2)
  1. AFTERA [Suspect]
     Active Substance: LEVONORGESTREL
     Indication: POST COITAL CONTRACEPTION
     Dates: start: 20170704, end: 20170704
  2. AFTERA [Suspect]
     Active Substance: LEVONORGESTREL
     Dates: start: 20170705, end: 20170705

REACTIONS (1)
  - Vomiting [Recovered/Resolved]

NARRATIVE: CASE EVENT DATE: 20170705
